FAERS Safety Report 7457419-4 (Version None)
Quarter: 2011Q2

REPORT INFORMATION
  Report Type: 
  Country: None (occurrence: None)
  Receive Date: 20110504
  Receipt Date: 20110421
  Transmission Date: 20111010
  Serious: No
  Sender: FDA-Public Use
  Company Number: PHHY2011US33977

PATIENT
  Sex: Female
  Weight: 68.027 kg

DRUGS (11)
  1. TASIGNA [Suspect]
     Indication: CHRONIC MYELOID LEUKAEMIA
     Dosage: 150 MG, BID
     Route: 048
     Dates: start: 20091217
  2. VASOTEC [Concomitant]
     Dosage: UNK
  3. ALLOPURINOL [Concomitant]
  4. SOMA [Concomitant]
  5. VICOPROFEN [Concomitant]
  6. BUSPAR [Concomitant]
  7. ZANTAC [Concomitant]
  8. XANAX [Concomitant]
  9. PROCHLORPER [Concomitant]
  10. METOPROLOL SUCCINATE [Concomitant]
  11. ZOLOFT [Concomitant]

REACTIONS (10)
  - ABDOMINAL DISCOMFORT [None]
  - LICHEN PLANUS [None]
  - PAIN [None]
  - DECREASED APPETITE [None]
  - WEIGHT DECREASED [None]
  - BONE PAIN [None]
  - ALOPECIA [None]
  - FATIGUE [None]
  - BLOOD MAGNESIUM DECREASED [None]
  - DIARRHOEA [None]
